FAERS Safety Report 5809758-8 (Version None)
Quarter: 2008Q3

REPORT INFORMATION
  Report Type: 
  Country: None (occurrence: None)
  Receive Date: 20080715
  Receipt Date: 20080708
  Transmission Date: 20090109
  Serious: Yes (Death)
  Sender: FDA-Public Use
  Company Number: FR-AVENTIS-200812457FR

PATIENT
  Age: 64 Year
  Sex: Male
  Weight: 47 kg

DRUGS (3)
  1. TAXOTERE [Suspect]
     Route: 042
     Dates: start: 20080612, end: 20080616
  2. FLUOROURACIL [Suspect]
     Route: 042
     Dates: start: 20080613, end: 20080619
  3. CISPLATIN [Concomitant]
     Route: 042
     Dates: start: 20080612, end: 20080612

REACTIONS (3)
  - COMA [None]
  - DEATH [None]
  - HYPOTENSION [None]
